FAERS Safety Report 9455832 (Version 2)
Quarter: 2013Q3

REPORT INFORMATION
  Report Type: Spontaneous
  Country: US (occurrence: US)
  Receive Date: 20130813
  Receipt Date: 20130902
  Transmission Date: 20140515
  Serious: No
  Sender: FDA-Public Use
  Company Number: US-JNJFOC-20130712233

PATIENT
  Sex: Male
  Weight: 104.78 kg

DRUGS (7)
  1. INVEGA [Suspect]
     Indication: SCHIZOPHRENIA
     Dosage: 6 MG X 2 PLUS  3 MG X 2
     Route: 048
     Dates: start: 201307
  2. INVEGA [Suspect]
     Indication: SCHIZOPHRENIA
     Route: 048
     Dates: start: 201306, end: 20130709
  3. INVEGA [Suspect]
     Indication: SCHIZOPHRENIA
     Route: 048
     Dates: start: 201106, end: 20130806
  4. BENZTROPINE [Concomitant]
     Indication: EXTRAPYRAMIDAL DISORDER
     Route: 065
     Dates: start: 201306, end: 20130809
  5. LORAZEPAM [Concomitant]
     Indication: ANXIETY
     Route: 065
     Dates: start: 201106, end: 20130809
  6. DIPHENHYDRAMINE [Concomitant]
     Indication: SLEEP DISORDER THERAPY
     Route: 065
     Dates: start: 201106, end: 20130806
  7. LITHIUM CARBONATE [Concomitant]
     Indication: AFFECTIVE DISORDER
     Route: 065
     Dates: start: 201106, end: 20130806

REACTIONS (1)
  - Drug ineffective [Not Recovered/Not Resolved]
